FAERS Safety Report 14579031 (Version 1)
Quarter: 2018Q1

REPORT INFORMATION
  Report Type: Spontaneous
  Country: US (occurrence: US)
  Receive Date: 20180227
  Receipt Date: 20180227
  Transmission Date: 20180509
  Serious: No
  Sender: FDA-Public Use
  Company Number: US-TAIHO ONCOLOGY INC-EU-2018-00245

PATIENT
  Age: 58 Year
  Sex: Female
  Weight: 80.27 kg

DRUGS (7)
  1. PARACETAMOL/HYDROCODONE BITARTRATE [Concomitant]
     Dosage: NI
  2. PYRIDOXINE HYDROCHLORIDE. [Suspect]
     Active Substance: PYRIDOXINE HYDROCHLORIDE
     Dosage: NI
  3. PROCHLORPERAZINE. [Concomitant]
     Active Substance: PROCHLORPERAZINE
     Dosage: NI
  4. LONSURF [Suspect]
     Active Substance: TIPIRACIL HYDROCHLORIDE\TRIFLURIDINE
     Dosage: CYCLE 1
     Route: 048
     Dates: start: 20180205, end: 20180212
  5. SYNTHROID [Concomitant]
     Active Substance: LEVOTHYROXINE SODIUM
     Dosage: NI
  6. ZOFRAN [Concomitant]
     Active Substance: ONDANSETRON HYDROCHLORIDE
     Dosage: NI
  7. PRADAXA [Concomitant]
     Active Substance: DABIGATRAN ETEXILATE MESYLATE
     Dosage: NI

REACTIONS (3)
  - Hypoaesthesia [Recovered/Resolved]
  - Asthenia [Recovered/Resolved]
  - Peripheral coldness [Recovered/Resolved]

NARRATIVE: CASE EVENT DATE: 20180208
